FAERS Safety Report 6721770-3 (Version None)
Quarter: 2010Q2

REPORT INFORMATION
  Report Type: 
  Country: None (occurrence: None)
  Receive Date: 20100512
  Receipt Date: 20100503
  Transmission Date: 20101027
  Serious: Yes (Other)
  Sender: FDA-Public Use
  Company Number: US-ROCHE-693905

PATIENT
  Sex: Female

DRUGS (3)
  1. HERCEPTIN [Suspect]
     Indication: BREAST CANCER
     Route: 065
  2. XELODA [Suspect]
     Indication: BREAST CANCER
     Route: 065
  3. TYKERB [Concomitant]

REACTIONS (11)
  - BALANCE DISORDER [None]
  - CONSTIPATION [None]
  - DIARRHOEA [None]
  - DYSURIA [None]
  - GASTROINTESTINAL HAEMORRHAGE [None]
  - LYMPHADENOPATHY [None]
  - MOUTH HAEMORRHAGE [None]
  - NEURALGIA [None]
  - ONYCHOMADESIS [None]
  - SKIN EXFOLIATION [None]
  - TREATMENT FAILURE [None]
